FAERS Safety Report 7111699-3 (Version None)
Quarter: 2010Q4

REPORT INFORMATION
  Report Type: 
  Country: None (occurrence: None)
  Receive Date: 20101118
  Receipt Date: 20101110
  Transmission Date: 20110411
  Serious: Yes (Other)
  Sender: FDA-Public Use
  Company Number: US-PFIZER INC-2010145303

PATIENT
  Sex: Male

DRUGS (1)
  1. XALATAN [Suspect]
     Indication: GLAUCOMA
     Dosage: UNK

REACTIONS (5)
  - ABNORMAL SENSATION IN EYE [None]
  - EXCESSIVE EYE BLINKING [None]
  - EYE PRURITUS [None]
  - FEELING ABNORMAL [None]
  - VISUAL IMPAIRMENT [None]
